FAERS Safety Report 12392877 (Version 1)
Quarter: 2016Q2

REPORT INFORMATION
  Report Type: Spontaneous
  Country: US (occurrence: None)
  Receive Date: 20160520
  Receipt Date: 20160520
  Transmission Date: 20160815
  Serious: Yes (Other)
  Sender: FDA-Public Use
  Company Number: None

PATIENT
  Age: 62 Year
  Sex: Female
  Weight: 90.27 kg

DRUGS (24)
  1. SIMVASTATIN. [Concomitant]
     Active Substance: SIMVASTATIN
  2. VAGIFEM [Concomitant]
     Active Substance: ESTRADIOL
  3. METFORMIN [Concomitant]
     Active Substance: METFORMIN HYDROCHLORIDE
  4. FISH OIL [Concomitant]
     Active Substance: FISH OIL
  5. LEVOFLOXACIN 500MG TABLET (SUBST FOR LEVAQUIN) AROBINDO PHARM [Suspect]
     Active Substance: LEVOFLOXACIN
     Indication: URINARY TRACT INFECTION
     Dosage: 500MG 1 PILL DAILY MOUTH
     Route: 048
     Dates: start: 20160322, end: 20160322
  6. LEVOTHYROXINE. [Concomitant]
     Active Substance: LEVOTHYROXINE
  7. GLIPIZIDE. [Concomitant]
     Active Substance: GLIPIZIDE
  8. FENOFIBRATE. [Concomitant]
     Active Substance: FENOFIBRATE
  9. CLONODINE [Concomitant]
  10. MULTI VITAMIN [Concomitant]
     Active Substance: VITAMINS
  11. LISINOPRIL. [Concomitant]
     Active Substance: LISINOPRIL
  12. LUTEIN [Concomitant]
     Active Substance: LUTEIN
  13. VITAMIN D3 [Concomitant]
     Active Substance: CHOLECALCIFEROL
  14. COQ10 [Concomitant]
     Active Substance: UBIDECARENONE
  15. COREG [Concomitant]
     Active Substance: CARVEDILOL
  16. PRADAXA [Concomitant]
     Active Substance: DABIGATRAN ETEXILATE MESYLATE
  17. POTASSIUM [Concomitant]
     Active Substance: POTASSIUM
  18. MAGNESIUM [Concomitant]
     Active Substance: MAGNESIUM
  19. MECLAZINE [Concomitant]
  20. ZINC [Concomitant]
     Active Substance: ZINC\ZINC CHLORIDE
  21. CPAP [Concomitant]
     Active Substance: DEVICE
  22. NOVALOG [Concomitant]
  23. HCTZ [Concomitant]
     Active Substance: HYDROCHLOROTHIAZIDE
  24. CHEWABLE B COMPLEX [Concomitant]

REACTIONS (2)
  - Asthenia [None]
  - Movement disorder [None]

NARRATIVE: CASE EVENT DATE: 20160322
